FAERS Safety Report 6949524 (Version 2)
Quarter: 2020Q3

REPORT INFORMATION
  Report Type: Spontaneous
  Country: PT (occurrence: PT)
  Receive Date: 20090324
  Receipt Date: 20200831
  Transmission Date: 20201103
  Serious: Yes (Other)
  Sender: FDA-Public Use
  Company Number: PHHY2009PT09633

PATIENT
  Age: 69 Year
  Sex: Female

DRUGS (1)
  1. ZOMETA [Suspect]
     Active Substance: ZOLEDRONIC ACID
     Indication: METASTASES TO BONE
     Dosage: 1 DF, CYCLIC
     Route: 042
     Dates: start: 20060504, end: 20080805

REACTIONS (5)
  - Fistula discharge [Recovered/Resolved]
  - Post procedural fistula [Recovered/Resolved]
  - Bone fistula [Recovered/Resolved]
  - Bone disorder [Recovering/Resolving]
  - Osteonecrosis of jaw [Recovered/Resolved with Sequelae]

NARRATIVE: CASE EVENT DATE: 200809
